FAERS Safety Report 8897840 (Version 1)
Quarter: 2012Q4

REPORT INFORMATION
  Report Type: 
  Country: US (occurrence: US)
  Receive Date: 20121108
  Receipt Date: 20121108
  Transmission Date: 20130627
  Serious: No
  Sender: FDA-Public Use
  Company Number: US-AMGEN-USASP2012030802

PATIENT
  Age: 64 Year
  Sex: Female

DRUGS (10)
  1. ENBREL [Suspect]
     Indication: PRODUCT USED FOR UNKNOWN INDICATION
     Dosage: 50 mg, qwk
     Dates: end: 201112
  2. IBUPROFEN [Concomitant]
     Dosage: 200 mg, UNK
  3. METHOTREXATE [Concomitant]
     Dosage: 2.5 mg, UNK
  4. PLAQUENIL                          /00072603/ [Concomitant]
     Dosage: 200 mg, UNK
  5. FOLIC ACID [Concomitant]
  6. PEPCID AC [Concomitant]
     Dosage: 20 mg, UNK
  7. DIOVAN [Concomitant]
     Dosage: 160 mg, UNK
  8. CALTRATE                           /00751519/ [Concomitant]
  9. VITAMIN C                          /00008001/ [Concomitant]
     Dosage: 100 mg, UNK
  10. VITAMIN D /00107901/ [Concomitant]
     Dosage: 1000 IU, UNK

REACTIONS (2)
  - Urinary tract infection [Unknown]
  - Fungal infection [Unknown]
